FAERS Safety Report 5398245-X (Version None)
Quarter: 2007Q3

REPORT INFORMATION
  Report Type: 
  Country: None (occurrence: None)
  Receive Date: 20070726
  Receipt Date: 20070723
  Transmission Date: 20080115
  Serious: Yes (Disabling)
  Sender: FDA-Public Use
  Company Number: US-BOEHRINGER INGELHEIM PHARMACEUTICALS, INC.-2007-BP-17804BP

PATIENT
  Age: 82 Year
  Sex: Male

DRUGS (3)
  1. FLOMAX [Suspect]
     Indication: BENIGN PROSTATIC HYPERPLASIA
     Route: 048
     Dates: start: 20040601, end: 20070401
  2. COZAAR [Concomitant]
  3. AMILORIDE HYDROCHLORIDE [Concomitant]

REACTIONS (2)
  - JOINT STIFFNESS [None]
  - OEDEMA PERIPHERAL [None]
